FAERS Safety Report 5270596-9 (Version None)
Quarter: 2007Q1

REPORT INFORMATION
  Report Type: 
  Country: None (occurrence: None)
  Receive Date: 20070315
  Receipt Date: 20070310
  Transmission Date: 20070707
  Serious: Yes (Other)
  Sender: FDA-Public Use
  Company Number: 233900

PATIENT
  Age: 50 Year
  Sex: Female

DRUGS (1)
  1. RAPTIVA [Suspect]
     Indication: PSORIASIS
     Dosage: 125 MG/ML, 1/WEEK, SUBCUTANEOUS
     Route: 058
     Dates: start: 20050720, end: 20061204

REACTIONS (1)
  - MYCOSIS FUNGOIDES [None]
